FAERS Safety Report 19116830 (Version 1)
Quarter: 2021Q2

REPORT INFORMATION
  Report Type: Spontaneous
  Country: CN (occurrence: CN)
  Receive Date: 20210409
  Receipt Date: 20210409
  Transmission Date: 20210717
  Serious: Yes (Other)
  Sender: FDA-Public Use
  Company Number: CN-BAXTER-2021BAX006702

PATIENT
  Age: 10 Year
  Sex: Male
  Weight: 36 kg

DRUGS (5)
  1. 5% GLUCOSE AND 0.9% SODIUM CHLORIDE INJECTION [Suspect]
     Active Substance: DEXTROSE\SODIUM CHLORIDE
     Indication: MEDICATION DILUTION
     Dosage: GLUCOSE AND SODIUM CHLORIDE (4:1) 250 ML + CYCLOPHOSPHAMIDE 1.25 G
     Route: 041
     Dates: start: 20210226, end: 20210226
  2. ENDOXAN [Suspect]
     Active Substance: CYCLOPHOSPHAMIDE
     Indication: T-CELL LYMPHOMA
     Dosage: CAM CHEMOTHERAPY, CYCLOPHOSPHAMIDE 1.25 G + GLUCOSE AND SODIUM CHLORIDE (4:1) 250 ML
     Route: 041
     Dates: start: 20210226, end: 20210226
  3. CYTOSAR [Suspect]
     Active Substance: CYTARABINE
     Indication: T-CELL LYMPHOMA
     Dosage: CAM CHEMOTHERAPY, CYTARABINE 1.25 G + GLUCOSE AND SODIUM CHLORIDE (4:1) 250 ML
     Route: 041
     Dates: start: 20210226, end: 20210228
  4. 5% GLUCOSE AND 0.9% SODIUM CHLORIDE INJECTION [Suspect]
     Active Substance: DEXTROSE\SODIUM CHLORIDE
     Dosage: GLUCOSE AND SODIUM CHLORIDE (4:1) 250 ML + CYTARABINE 1.25 G
     Route: 041
     Dates: start: 20210226, end: 20210228
  5. MERCAPTOPURINE. [Suspect]
     Active Substance: MERCAPTOPURINE
     Indication: T-CELL LYMPHOMA
     Dosage: CAM CHEMOTHERAPY, DOSAGE FORM: TABLET
     Route: 048
     Dates: start: 20210226, end: 20210304

REACTIONS (1)
  - Myelosuppression [Recovering/Resolving]

NARRATIVE: CASE EVENT DATE: 20210306
